FAERS Safety Report 12122221 (Version 2)
Quarter: 2016Q4

REPORT INFORMATION
  Report Type: Report from Study
  Country: US (occurrence: US)
  Receive Date: 20160226
  Receipt Date: 20161018
  Transmission Date: 20170206
  Serious: No
  Sender: FDA-Public Use
  Company Number: US-TAKEDA-2016TUS003339

PATIENT
  Age: 66 Year
  Sex: Male

DRUGS (1)
  1. VEDOLIZUMAB [Suspect]
     Active Substance: VEDOLIZUMAB
     Indication: COLITIS ULCERATIVE
     Dosage: 300 MG, UNK
     Route: 042
     Dates: start: 201511

REACTIONS (3)
  - Pruritus [Not Recovered/Not Resolved]
  - Therapeutic reaction time decreased [Unknown]
  - Rash papular [Not Recovered/Not Resolved]

NARRATIVE: CASE EVENT DATE: 201607
